FAERS Safety Report 4871853-8 (Version None)
Quarter: 2006Q1

REPORT INFORMATION
  Report Type: 
  Country: None (occurrence: None)
  Receive Date: 20060104
  Receipt Date: 20051005
  Transmission Date: 20060701
  Serious: Yes (Death, Hospitalization)
  Sender: FDA-Public Use
  Company Number: US-MERCK-0510USA04080

PATIENT
  Age: 82 Year
  Sex: Female
  Weight: 52 kg

DRUGS (13)
  1. VIOXX [Suspect]
     Indication: RHEUMATOID ARTHRITIS
     Route: 048
     Dates: end: 20040501
  2. PLAVIX [Concomitant]
     Route: 065
  3. NITRO-DUR [Concomitant]
     Route: 061
  4. LASIX [Concomitant]
     Route: 065
  5. LASIX [Concomitant]
     Route: 065
  6. PREDNISONE [Concomitant]
     Route: 065
  7. MEGACE [Concomitant]
     Route: 065
  8. PROTONIX [Concomitant]
     Route: 065
  9. MAALOX FAST BLOCKER [Concomitant]
     Route: 065
  10. MICRO-K [Concomitant]
     Route: 065
  11. ARTHROTEC [Concomitant]
     Route: 065
  12. HYDROCHLOROTHIAZIDE [Concomitant]
     Route: 065
  13. PEPCID [Concomitant]
     Route: 048

REACTIONS (11)
  - ANAEMIA [None]
  - CELLULITIS [None]
  - CEREBROVASCULAR ACCIDENT [None]
  - DEATH [None]
  - DYSPNOEA [None]
  - GASTROINTESTINAL HAEMORRHAGE [None]
  - HELICOBACTER PYLORI IDENTIFICATION TEST [None]
  - LEUKOPENIA [None]
  - NEUTROPENIA [None]
  - OSTEOPENIA [None]
  - SKIN ULCER [None]
